FAERS Safety Report 5069653-1 (Version None)
Quarter: 2006Q3

REPORT INFORMATION
  Report Type: 
  Country: None (occurrence: None)
  Receive Date: 20060802
  Receipt Date: 20060802
  Transmission Date: 20061208
  Serious: Yes (Life-Threatening, Hospitalization)
  Sender: FDA-Public Use
  Company Number: None

PATIENT
  Age: 73 Year
  Sex: Female
  Weight: 83 kg

DRUGS (2)
  1. LEVOFLOXACIN [Suspect]
     Indication: POSTOPERATIVE CARE
     Dosage: ONE DOSE
     Dates: start: 20060728, end: 20060728
  2. LEVOFLOXACIN [Suspect]
     Indication: PROPHYLAXIS
     Dosage: ONE DOSE
     Dates: start: 20060728, end: 20060728

REACTIONS (7)
  - AGONAL DEATH STRUGGLE [None]
  - ANOXIC ENCEPHALOPATHY [None]
  - CARDIO-RESPIRATORY ARREST [None]
  - CONVULSION [None]
  - LOSS OF CONSCIOUSNESS [None]
  - TORSADE DE POINTES [None]
  - VENTRICULAR TACHYCARDIA [None]
